FAERS Safety Report 8438706-X (Version None)
Quarter: 2012Q2

REPORT INFORMATION
  Report Type: 
  Country: None (occurrence: None)
  Receive Date: 20120611
  Receipt Date: 20120611
  Transmission Date: 20120825
  Serious: Yes (Death)
  Sender: FDA-Public Use
  Company Number: None

PATIENT
  Age: 83 Year
  Sex: Female
  Weight: 80 kg

DRUGS (4)
  1. PRADAXA [Suspect]
     Indication: ATRIAL FIBRILLATION
     Dosage: 75 MG TWICE DAILY ORAL
     Route: 048
     Dates: start: 20120520
  2. PRADAXA [Suspect]
     Indication: CEREBROVASCULAR ACCIDENT PROPHYLAXIS
     Dosage: 75 MG TWICE DAILY ORAL
     Route: 048
     Dates: start: 20120520
  3. PRADAXA [Suspect]
     Indication: ATRIAL FIBRILLATION
     Dosage: 75 MG TWICE DAILY ORAL
     Route: 048
     Dates: start: 20120512
  4. PRADAXA [Suspect]
     Indication: CEREBROVASCULAR ACCIDENT PROPHYLAXIS
     Dosage: 75 MG TWICE DAILY ORAL
     Route: 048
     Dates: start: 20120512

REACTIONS (5)
  - BRAIN OEDEMA [None]
  - CEREBRAL INFARCTION [None]
  - HAEMORRHAGIC TRANSFORMATION STROKE [None]
  - VISUAL PATHWAY DISORDER [None]
  - UNRESPONSIVE TO STIMULI [None]
